FAERS Safety Report 14257175 (Version 1)
Quarter: 2017Q4

REPORT INFORMATION
  Report Type: Report from Study
  Country: US (occurrence: US)
  Receive Date: 20171206
  Receipt Date: 20171206
  Transmission Date: 20180321
  Serious: Yes (Other)
  Sender: FDA-Public Use
  Company Number: PHEH2017US038955

PATIENT
  Age: 34 Year
  Sex: Female
  Weight: 55.33 kg

DRUGS (1)
  1. GILENYA [Suspect]
     Active Substance: FINGOLIMOD HYDROCHLORIDE
     Indication: MULTIPLE SCLEROSIS
     Dosage: 0.5 MG, QD
     Route: 048
     Dates: start: 20171125

REACTIONS (8)
  - Vomiting [Unknown]
  - Dysstasia [Unknown]
  - Malaise [Unknown]
  - Loss of consciousness [Unknown]
  - Fall [Unknown]
  - Nausea [Unknown]
  - Vertigo [Unknown]
  - Neuropathy peripheral [Unknown]

NARRATIVE: CASE EVENT DATE: 20171125
